FAERS Safety Report 22540648 (Version 1)
Quarter: 2023Q2

REPORT INFORMATION
  Report Type: Report from Study
  Country: DE (occurrence: DE)
  Receive Date: 20230609
  Receipt Date: 20230609
  Transmission Date: 20230721
  Serious: Yes (Hospitalization)
  Sender: FDA-Public Use
  Company Number: DE-GENMAB-2023-00621

PATIENT
  Age: 73 Year
  Sex: Male
  Weight: 131 kg

DRUGS (38)
  1. EPCORITAMAB [Suspect]
     Active Substance: EPCORITAMAB
     Indication: Diffuse large B-cell lymphoma
     Dosage: PRIMING DOSE: 0.16 MILLIGRAM, SINGLE
     Route: 058
     Dates: start: 20230119, end: 20230119
  2. EPCORITAMAB [Suspect]
     Active Substance: EPCORITAMAB
     Dosage: INTERMEDIATE DOSE: 0.8 MILLIGRAM, SINGLE
     Route: 058
     Dates: start: 20230126, end: 20230126
  3. EPCORITAMAB [Suspect]
     Active Substance: EPCORITAMAB
     Dosage: FULL DOSE: 48 MILLIGRAM, WEEKLY
     Route: 058
     Dates: start: 20230202, end: 20230330
  4. EPCORITAMAB [Suspect]
     Active Substance: EPCORITAMAB
     Dosage: FULL DOSE: 48 MILLIGRAM, WEEKLY
     Route: 058
     Dates: start: 20230413
  5. DIMETHINDENE [Concomitant]
     Active Substance: DIMETHINDENE
     Indication: Premedication
     Dosage: 4 MILLIGRAM, SINGLE
     Route: 042
     Dates: start: 20230330, end: 20230330
  6. DIMETHINDENE [Concomitant]
     Active Substance: DIMETHINDENE
     Dosage: 4 MILLIGRAM, SINGLE
     Route: 042
     Dates: start: 20230413, end: 20230413
  7. DIMETHINDENE [Concomitant]
     Active Substance: DIMETHINDENE
     Dosage: 4 MILLIGRAM, SINGLE
     Route: 042
     Dates: start: 20230420, end: 20230420
  8. ACETAMINOPHEN [Concomitant]
     Active Substance: ACETAMINOPHEN
     Indication: Premedication
     Dosage: 1000 MILLIGRAM, SINGLE
     Route: 048
     Dates: start: 20230330, end: 20230330
  9. ACETAMINOPHEN [Concomitant]
     Active Substance: ACETAMINOPHEN
     Dosage: 1000 MILLIGRAM, SINGLE
     Route: 048
     Dates: start: 20230413, end: 20230413
  10. ACETAMINOPHEN [Concomitant]
     Active Substance: ACETAMINOPHEN
     Dosage: 1000 MILLIGRAM, SINGLE
     Route: 048
     Dates: start: 20230420, end: 20230420
  11. DEXAMETHASONE [Concomitant]
     Active Substance: DEXAMETHASONE
     Indication: Prophylaxis
     Dosage: 20 MILLIGRAM, SINGLE
     Route: 042
     Dates: start: 20230330, end: 20230330
  12. ALLOPURINOL [Concomitant]
     Active Substance: ALLOPURINOL
     Indication: Prophylaxis
     Dosage: 300 MILLIGRAM, QD
     Route: 048
     Dates: start: 20230117, end: 20230327
  13. DIGITOXIN [Concomitant]
     Active Substance: DIGITOXIN
     Indication: Atrial fibrillation
     Dosage: 0.7 MILLIGRAM, QD
     Route: 048
     Dates: start: 20230312, end: 20230330
  14. JONOSTERIL [CALCIUM ACETATE;MAGNESIUM ACETATE TETRAHYDRATE;POTASSIUM A [Concomitant]
     Indication: Prophylaxis
     Dosage: 1000 MILLILITER, PRN (6430 MG/1000 ML)
     Route: 042
     Dates: start: 20230307, end: 20230313
  15. JONOSTERIL [CALCIUM ACETATE;MAGNESIUM ACETATE TETRAHYDRATE;POTASSIUM A [Concomitant]
     Indication: Cytokine release syndrome
     Dosage: 1000 MILLILITER, PRN (6430 MG/1000 ML)
     Route: 042
     Dates: start: 20230308, end: 20230313
  16. LENOGRASTIM [Concomitant]
     Active Substance: LENOGRASTIM
     Indication: Neutropenia
     Dosage: 263 MICROGRAM, PRN
     Route: 058
     Dates: start: 20230207, end: 20230315
  17. LENOGRASTIM [Concomitant]
     Active Substance: LENOGRASTIM
     Dosage: 34 MILLION INTERNATIONAL UNIT, SINGLE
     Route: 058
     Dates: start: 20230322, end: 20230322
  18. LENOGRASTIM [Concomitant]
     Active Substance: LENOGRASTIM
     Dosage: 34 MILLION INTERNATIONAL UNIT, SINGLE
     Route: 058
     Dates: start: 20230330, end: 20230330
  19. POLYETHYLENE GLYCOLS [Concomitant]
     Active Substance: POLYETHYLENE GLYCOLS
     Indication: Constipation
     Dosage: 13.8 GRAM, PRN
     Route: 048
     Dates: start: 20230312, end: 20230420
  20. MAGNESIUM OXIDE [Concomitant]
     Active Substance: MAGNESIUM OXIDE
     Indication: Muscle spasms
     Dosage: 375 MILLIGRAM, PRN
     Route: 048
     Dates: start: 20230304
  21. MEROPENEM [Concomitant]
     Active Substance: MEROPENEM
     Indication: Febrile neutropenia
     Dosage: 1000 MILLIGRAM, TID
     Route: 042
     Dates: start: 20230303, end: 20230317
  22. MEROPENEM [Concomitant]
     Active Substance: MEROPENEM
     Indication: Neutropenia
  23. METOPROLOL [Concomitant]
     Active Substance: METOPROLOL
     Indication: Atrial fibrillation
     Dosage: 47.5 MILLIGRAM, BID
     Route: 048
     Dates: start: 20230311
  24. PANTOPRAZOLE [Concomitant]
     Active Substance: PANTOPRAZOLE
     Indication: Prophylaxis
     Dosage: 20 MILLIGRAM, BID
     Route: 048
     Dates: start: 20230118
  25. ACETAMINOPHEN [Concomitant]
     Active Substance: ACETAMINOPHEN
     Indication: Cytokine release syndrome
     Dosage: 1000 MILLIGRAM, SINGLE
     Route: 042
     Dates: start: 20230311, end: 20230311
  26. MEPERIDINE [Concomitant]
     Active Substance: MEPERIDINE
     Indication: Cytokine release syndrome
     Dosage: 50 MILLIGRAM, SINGLE
     Route: 042
     Dates: start: 20230308, end: 20230308
  27. PREDNISOLONE [Concomitant]
     Active Substance: PREDNISOLONE
     Indication: Product used for unknown indication
     Dosage: 25 MILLIGRAM, QD
     Route: 048
     Dates: start: 20230307, end: 20230310
  28. NALOXONE HYDROCHLORIDE\TILIDINE HYDROCHLORIDE [Concomitant]
     Active Substance: NALOXONE HYDROCHLORIDE\TILIDINE HYDROCHLORIDE
     Indication: Diverticular perforation
     Dosage: 50/4 MG, BID
     Route: 048
     Dates: start: 20230302, end: 20230310
  29. TINZAPARIN SODIUM [Concomitant]
     Active Substance: TINZAPARIN SODIUM
     Indication: Prophylaxis
     Dosage: 4500 INTERNATIONAL UNIT, QD
     Route: 058
     Dates: start: 20230311, end: 20230314
  30. TOCILIZUMAB [Concomitant]
     Active Substance: TOCILIZUMAB
     Indication: Cytokine release syndrome
     Dosage: 8 MILLIGRAM/KILOGRAM, SINGLE
     Route: 042
     Dates: start: 20230308, end: 20230308
  31. VALACYCLOVIR HYDROCHLORIDE [Concomitant]
     Active Substance: VALACYCLOVIR HYDROCHLORIDE
     Indication: Prophylaxis
     Dosage: 500 MILLIGRAM, QD
     Route: 048
     Dates: start: 20230216, end: 20230310
  32. APIXABAN [Concomitant]
     Active Substance: APIXABAN
     Dosage: 5 MILLIGRAM, QD
     Route: 048
     Dates: start: 20230412
  33. FUROSEMIDE [Concomitant]
     Active Substance: FUROSEMIDE
     Indication: Oedema
     Dosage: 40 MILLIGRAM, SINGLE
     Route: 048
     Dates: start: 20230328, end: 20230328
  34. FUROSEMIDE [Concomitant]
     Active Substance: FUROSEMIDE
     Indication: Hyperkalaemia
     Dosage: 40 MILLIGRAM, SINGLE
     Route: 042
     Dates: start: 20230329, end: 20230329
  35. FUROSEMIDE [Concomitant]
     Active Substance: FUROSEMIDE
     Indication: Fluid retention
  36. TINZAPARIN [Concomitant]
     Active Substance: TINZAPARIN
     Indication: Prophylaxis
     Dosage: 22000 MILLION INTERNATIONAL UNIT, QD
     Route: 058
     Dates: start: 20230315, end: 20230324
  37. COTRIMOXAZOLE [Concomitant]
     Active Substance: SULFAMETHOXAZOLE\TRIMETHOPRIM
     Indication: Prophylaxis
     Dosage: 960 MILLIGRAM, THREE TIMES PER WEEK
     Route: 048
     Dates: start: 20230210
  38. ELIQUIS [Concomitant]
     Active Substance: APIXABAN
     Dosage: 5 MILLIGRAM, QD
     Route: 048
     Dates: start: 20230412

REACTIONS (1)
  - Bronchitis [Recovered/Resolved]

NARRATIVE: CASE EVENT DATE: 20230405
